FAERS Safety Report 5978787-6 (Version None)
Quarter: 2008Q4

REPORT INFORMATION
  Report Type: 
  Country: None (occurrence: None)
  Receive Date: 20081204
  Receipt Date: 20081124
  Transmission Date: 20090506
  Serious: Yes (Other)
  Sender: FDA-Public Use
  Company Number: PHHY2008BR29814

PATIENT
  Sex: Female

DRUGS (2)
  1. METHERGINE [Suspect]
     Dosage: UNK
     Route: 042
  2. BUSCOPAN [Concomitant]
     Indication: PAIN

REACTIONS (3)
  - DIZZINESS [None]
  - HEART RATE INCREASED [None]
  - PRESYNCOPE [None]
